FAERS Safety Report 4611725-7 (Version None)
Quarter: 2005Q2

REPORT INFORMATION
  Report Type: 
  Country: None (occurrence: None)
  Receive Date: 20050311
  Receipt Date: 20041104
  Transmission Date: 20051028
  Serious: No
  Sender: FDA-Public Use
  Company Number: 2004-BP-10286BP

PATIENT
  Age: 73 Year
  Sex: Male

DRUGS (8)
  1. SPIRIVA [Suspect]
     Indication: CHRONIC OBSTRUCTIVE PULMONARY DISEASE
     Dosage: 18 MCG (18 MCG), IH
     Route: 055
     Dates: start: 20041006, end: 20041009
  2. ALBUTEROL [Concomitant]
  3. OXYGEN (OXYGEN) [Concomitant]
  4. HYDROCHLOROTHIAZIDE [Concomitant]
  5. LABETALOL HCL [Concomitant]
  6. LOSARTAN (LOSARTAN) [Concomitant]
  7. NITROGLYCERIN [Concomitant]
  8. AMIODARONE (AMIDARONE) [Concomitant]

REACTIONS (4)
  - CHEST DISCOMFORT [None]
  - CONSTIPATION [None]
  - DRUG INEFFECTIVE [None]
  - TACHYCARDIA [None]
